FAERS Safety Report 8967341 (Version 1)
Quarter: 2012Q4

REPORT INFORMATION
  Report Type: 
  Country: GB (occurrence: GB)
  Receive Date: 20121214
  Receipt Date: 20121214
  Transmission Date: 20130627
  Serious: Yes (Death, Hospitalization)
  Sender: FDA-Public Use
  Company Number: GB-GILEAD-2012-0066208

PATIENT
  Age: 46 Year
  Sex: Female

DRUGS (9)
  1. VISTIDE [Suspect]
     Indication: PROGRESSIVE MULTIFOCAL LEUKOENCEPHALOPATHY
     Route: 042
  2. MIRTAZAPINE [Concomitant]
     Indication: PROGRESSIVE MULTIFOCAL LEUKOENCEPHALOPATHY
  3. RALTEGRAVIR [Concomitant]
     Indication: HIV INFECTION
  4. DARUNAVIR [Concomitant]
     Indication: HIV INFECTION
  5. RITONAVIR [Concomitant]
     Indication: HIV INFECTION
  6. MARAVIROC [Concomitant]
     Indication: HIV INFECTION
  7. PYRIMETHAMINE [Concomitant]
     Indication: CEREBRAL TOXOPLASMOSIS
  8. FOLINIC ACID [Concomitant]
     Indication: CEREBRAL TOXOPLASMOSIS
  9. CLINDAMYCIN                        /00166002/ [Concomitant]
     Indication: CEREBRAL TOXOPLASMOSIS

REACTIONS (1)
  - Drug ineffective for unapproved indication [Fatal]
